FAERS Safety Report 19750311 (Version 1)
Quarter: 2021Q3

REPORT INFORMATION
  Report Type: Spontaneous
  Country: US (occurrence: US)
  Receive Date: 20210824
  Receipt Date: 20210824
  Transmission Date: 20211014
  Serious: No
  Sender: FDA-Public Use
  Company Number: None

PATIENT
  Sex: Male

DRUGS (8)
  1. CAPECITABINE 500MG [Suspect]
     Active Substance: CAPECITABINE
     Indication: TONGUE NEOPLASM MALIGNANT STAGE UNSPECIFIED
     Dosage: OTHER FREQUENCY:BIDX14D, 7DOFF;?
     Route: 048
     Dates: start: 20210428
  2. MULITVITAMINS [Concomitant]
  3. ALBUTEROL JFA [Concomitant]
  4. NORCO [Concomitant]
     Active Substance: ACETAMINOPHEN\HYDROCODONE BITARTRATE
  5. CALCIUM  VIT D [Concomitant]
     Active Substance: CALCIUM\CHOLECALCIFEROL
  6. LEVOTHYROXINE. [Concomitant]
     Active Substance: LEVOTHYROXINE
  7. LIDOCAINE VISCOULS SOLUTION [Concomitant]
  8. FLONASE [Concomitant]
     Active Substance: FLUTICASONE PROPIONATE

REACTIONS (3)
  - Peripheral swelling [None]
  - Swelling [None]
  - Eye swelling [None]
